FAERS Safety Report 5999340-4 (Version None)
Quarter: 2008Q4

REPORT INFORMATION
  Report Type: 
  Country: None (occurrence: None)
  Receive Date: 20081215
  Receipt Date: 20081125
  Transmission Date: 20090506
  Serious: Yes (Life-Threatening)
  Sender: FDA-Public Use
  Company Number: GB-NOVOPROD-281804

PATIENT
  Age: 63 Year
  Sex: Male
  Weight: 130 kg

DRUGS (18)
  1. LEVEMIR [Suspect]
     Indication: DIABETES MELLITUS
     Dosage: 40 IU, BID
     Route: 058
     Dates: start: 20081105, end: 20081106
  2. ACAMPROSATE [Concomitant]
     Dosage: 333 MG, BID
     Route: 048
     Dates: start: 20030408
  3. ATORVASTATIN [Concomitant]
     Dosage: 20 MG, QD
     Route: 048
     Dates: start: 20041221
  4. CETIRIZINE HYDROCHLORIDE [Concomitant]
     Dosage: 10 MG, QD
     Dates: start: 20040816
  5. CITALOPRAM HYDROBROMIDE [Concomitant]
     Dosage: 30 MG, QD
  6. CLOPIDOGREL [Concomitant]
     Dosage: 75 MG, QD
     Route: 048
  7. CORO-NITRO [Concomitant]
     Dosage: 400 MG, QD
  8. DICLOFENAC [Concomitant]
     Dosage: 50 MG, QD
  9. GLUCOPHAGE [Concomitant]
     Dosage: 500 MG, QID
  10. LANTUS [Concomitant]
     Dosage: 92 IU, QD
     Route: 058
     Dates: start: 20080128, end: 20081104
  11. LISINOPRIL [Concomitant]
     Dosage: 25 MG, QD
  12. MONTELUKAST SODIUM [Concomitant]
  13. ORLISTAT [Concomitant]
     Dosage: 120 MG, QD
  14. RABEPRAZOLE SODIUM [Concomitant]
     Dosage: 20 MG, QD
  15. ALBUTEROL SULFATE [Concomitant]
     Dosage: 100 UG, UNK
     Route: 055
  16. SERETIDE                           /01420901/ [Concomitant]
     Dosage: 250 UG, UNK
     Route: 055
  17. SILDENAFIL CITRATE [Concomitant]
     Dosage: 100 MG, QD
  18. VERAPAMIL [Concomitant]
     Dosage: 80 MG, QD

REACTIONS (3)
  - CHEST DISCOMFORT [None]
  - DYSPNOEA [None]
  - RASH PRURITIC [None]
